FAERS Safety Report 11372099 (Version 5)
Quarter: 2016Q1

REPORT INFORMATION
  Report Type: Spontaneous
  Country: US (occurrence: US)
  Receive Date: 20150812
  Receipt Date: 20160204
  Transmission Date: 20160525
  Serious: No
  Sender: FDA-Public Use
  Company Number: US-AMGEN-USASP2015077293

PATIENT
  Age: 42 Year
  Sex: Female
  Weight: 54.42 kg

DRUGS (6)
  1. ENBREL [Suspect]
     Active Substance: ETANERCEPT
     Indication: RHEUMATOID ARTHRITIS
     Dosage: 50 MG, QWK
     Route: 058
     Dates: start: 201507, end: 201512
  2. FERRALET                           /00023502/ [Concomitant]
     Dosage: UNK, DAILY
     Route: 048
     Dates: start: 201506, end: 201511
  3. ENBREL [Suspect]
     Active Substance: ETANERCEPT
     Indication: PSORIASIS
  4. FISH OIL [Concomitant]
     Active Substance: FISH OIL
     Dosage: UNK
  5. FERROUS SULFATE [Concomitant]
     Active Substance: FERROUS SULFATE\FERROUS SULFATE, DRIED
     Dosage: UNK
  6. LEVOTHYROXINE. [Concomitant]
     Active Substance: LEVOTHYROXINE
     Indication: THYROID DISORDER
     Dosage: UNK, DAILY
     Route: 048
     Dates: start: 201407, end: 201509

REACTIONS (11)
  - Paraesthesia [Unknown]
  - Facial pain [Unknown]
  - Psoriasis [Unknown]
  - Oral mucosal blistering [Unknown]
  - Tongue blistering [Unknown]
  - Blister [Unknown]
  - Mouth ulceration [Recovering/Resolving]
  - Impaired healing [Recovering/Resolving]
  - Rash generalised [Recovered/Resolved]
  - Pain in extremity [Unknown]
  - Skin infection [Unknown]

NARRATIVE: CASE EVENT DATE: 2015
